FAERS Safety Report 5101282-3 (Version None)
Quarter: 2006Q3

REPORT INFORMATION
  Report Type: 
  Country: None (occurrence: None)
  Receive Date: 20060906
  Receipt Date: 20060822
  Transmission Date: 20061208
  Serious: No
  Sender: FDA-Public Use
  Company Number: 2006JP002218

PATIENT
  Age: 76 Year
  Sex: Male

DRUGS (5)
  1. VESICARE [Suspect]
     Indication: HYPERTONIC BLADDER
     Dosage: 5 MG, UID/QD, ORAL
     Route: 048
     Dates: start: 20060620, end: 20060707
  2. AMARYL [Concomitant]
  3. VOGLIBOSE (VOGLIBOSE) TABLET [Concomitant]
  4. SINGULAIR (MONTELUKAST) TABLET [Concomitant]
  5. HACHIMIGAN (HERBAL EXTRACT NOS) TABLET [Concomitant]

REACTIONS (4)
  - BLOOD PRESSURE INCREASED [None]
  - MENTAL DISORDER [None]
  - SINUS BRADYCARDIA [None]
  - WEIGHT INCREASED [None]
